FAERS Safety Report 23355477 (Version 3)
Quarter: 2024Q1

REPORT INFORMATION
  Report Type: Report from Study
  Country: CO (occurrence: CO)
  Receive Date: 20240102
  Receipt Date: 20240228
  Transmission Date: 20240410
  Serious: Yes (Hospitalization, Other)
  Sender: FDA-Public Use
  Company Number: CO-TAKEDA-2023TUS072432

PATIENT
  Age: 40 Year
  Sex: Female
  Weight: 107 kg

DRUGS (1)
  1. VEDOLIZUMAB [Suspect]
     Active Substance: VEDOLIZUMAB
     Indication: Crohn^s disease
     Dosage: 300 MILLIGRAM
     Route: 042
     Dates: start: 20230630, end: 20240119

REACTIONS (17)
  - Haematochezia [Unknown]
  - Diarrhoea [Unknown]
  - Emotional distress [Unknown]
  - Anhedonia [Unknown]
  - Depressed mood [Unknown]
  - Mental fatigue [Unknown]
  - Irritability [Unknown]
  - Insomnia [Unknown]
  - Anxiety [Unknown]
  - Product availability issue [Unknown]
  - Malaise [Unknown]
  - Drug ineffective [Unknown]
  - Abdominal pain [Unknown]
  - Decreased appetite [Recovering/Resolving]
  - Headache [Recovering/Resolving]
  - Fatigue [Unknown]
  - Nausea [Recovering/Resolving]

NARRATIVE: CASE EVENT DATE: 20231212
